FAERS Safety Report 11178492 (Version 2)
Quarter: 2015Q2

REPORT INFORMATION
  Report Type: Spontaneous
  Country: US (occurrence: US)
  Receive Date: 20150610
  Receipt Date: 20150618
  Transmission Date: 20150821
  Serious: Yes (Hospitalization, Other)
  Sender: FDA-Public Use
  Company Number: US-UCBSA-2015018256

PATIENT
  Age: 68 Year
  Sex: Female
  Weight: 76 kg

DRUGS (7)
  1. NEUPRO [Suspect]
     Active Substance: ROTIGOTINE
     Indication: RESTLESS LEGS SYNDROME
     Dosage: 1 MG, UNK
     Dates: start: 2013, end: 2013
  2. NAMENDA [Suspect]
     Active Substance: MEMANTINE HYDROCHLORIDE
     Indication: AMNESIA
     Dosage: 10 MG, ONCE DAILY (QD)
     Dates: start: 2013, end: 20150528
  3. NEUPRO [Suspect]
     Active Substance: ROTIGOTINE
     Dosage: 3 MG, ONCE DAILY (QD)
     Route: 062
     Dates: start: 2013
  4. FLUOXETINE [Concomitant]
     Active Substance: FLUOXETINE\FLUOXETINE HYDROCHLORIDE
     Indication: DEPRESSION
     Dosage: UNK
  5. NEUPRO [Suspect]
     Active Substance: ROTIGOTINE
     Dosage: UNKNOWN DOSE TITRATED FROM 1 MG TO 3MG
     Dates: start: 2013, end: 2013
  6. TRAZODONE [Suspect]
     Active Substance: TRAZODONE HYDROCHLORIDE
     Indication: FEELING OF RELAXATION
     Dosage: 100MG
     Dates: start: 2013, end: 20150528
  7. CLONAZEPAM. [Suspect]
     Active Substance: CLONAZEPAM
     Indication: SLEEP DISORDER
     Dosage: 15MG
     Route: 048
     Dates: end: 20150528

REACTIONS (10)
  - Skin discolouration [Recovered/Resolved]
  - Seizure [Recovered/Resolved]
  - Application site scar [Not Recovered/Not Resolved]
  - Aortic aneurysm [Recovered/Resolved]
  - Pneumonia [Not Recovered/Not Resolved]
  - Loss of consciousness [Recovered/Resolved]
  - Application site swelling [Not Recovered/Not Resolved]
  - Application site erythema [Not Recovered/Not Resolved]
  - Tremor [Recovered/Resolved]
  - Application site pruritus [Not Recovered/Not Resolved]

NARRATIVE: CASE EVENT DATE: 2013
